FAERS Safety Report 22299797 (Version 1)
Quarter: 2023Q2

REPORT INFORMATION
  Report Type: Spontaneous
  Country: US (occurrence: US)
  Receive Date: 20230509
  Receipt Date: 20230509
  Transmission Date: 20230722
  Serious: Yes (Hospitalization, Other)
  Sender: FDA-Public Use
  Company Number: US-BRISTOL-MYERS SQUIBB COMPANY-2023-065498

PATIENT
  Age: 76 Year
  Sex: Female
  Weight: 83.46 kg

DRUGS (1)
  1. REVLIMID [Suspect]
     Active Substance: LENALIDOMIDE
     Indication: Plasma cell myeloma
     Dosage: DOSE : 10 MG;     FREQ : ONCE DAILY FOR 21 AND 7 DAYS OFF
     Route: 048
     Dates: start: 20220804

REACTIONS (9)
  - Dizziness [Unknown]
  - Tremor [Unknown]
  - Asthenia [Unknown]
  - Arthralgia [Unknown]
  - Muscle spasms [Unknown]
  - Dehydration [Unknown]
  - Retching [Unknown]
  - Streptococcal infection [Unknown]
  - COVID-19 pneumonia [Unknown]

NARRATIVE: CASE EVENT DATE: 20230301
